FAERS Safety Report 10919708 (Version 2)
Quarter: 2015Q2

REPORT INFORMATION
  Report Type: Spontaneous
  Country: US (occurrence: US)
  Receive Date: 20150317
  Receipt Date: 20150526
  Transmission Date: 20150821
  Serious: Yes (Hospitalization)
  Sender: FDA-Public Use
  Company Number: US-JNJFOC-20130620686

PATIENT
  Sex: Male

DRUGS (1)
  1. PREZISTA [Suspect]
     Active Substance: DARUNAVIR ETHANOLATE
     Indication: HIV TEST POSITIVE
     Route: 048
     Dates: start: 2013, end: 2013

REACTIONS (1)
  - Rash [Unknown]

NARRATIVE: CASE EVENT DATE: 2013
